FAERS Safety Report 7484852-7 (Version None)
Quarter: 2011Q2

REPORT INFORMATION
  Report Type: 
  Country: None (occurrence: None)
  Receive Date: 20110517
  Receipt Date: 20110510
  Transmission Date: 20111010
  Serious: Yes (Death, Hospitalization)
  Sender: FDA-Public Use
  Company Number: A0758365A

PATIENT
  Age: 70 Year
  Sex: Female
  Weight: 90.9 kg

DRUGS (8)
  1. AVANDIA [Suspect]
     Dosage: 4MG TWICE PER DAY
     Route: 048
     Dates: start: 20030703, end: 20060301
  2. ATACAND [Concomitant]
  3. ENALAPRIL [Concomitant]
  4. GLUCOTROL XL [Concomitant]
     Dates: start: 20020101, end: 20060101
  5. LASIX [Concomitant]
  6. LIPITOR [Concomitant]
  7. CLONIDINE [Concomitant]
  8. CARTIA XT [Concomitant]

REACTIONS (3)
  - HYPOXIC-ISCHAEMIC ENCEPHALOPATHY [None]
  - CARDIAC FAILURE CONGESTIVE [None]
  - CARDIAC ARREST [None]
